FAERS Safety Report 10048255 (Version 1)
Quarter: 2014Q1

REPORT INFORMATION
  Report Type: Spontaneous
  Country: US (occurrence: US)
  Receive Date: 20140331
  Receipt Date: 20140331
  Transmission Date: 20141002
  Serious: No
  Sender: FDA-Public Use
  Company Number: US-PFIZER INC-2014088436

PATIENT
  Age: 65 Year
  Sex: Female

DRUGS (7)
  1. CELEBREX [Suspect]
     Dosage: 200 MG, 2X/DAY
  2. PROTONIX [Suspect]
     Dosage: 40 MG, 1X/DAY
  3. NORVASC [Suspect]
     Dosage: (5+ 10 MG) 15 MG, 1X/DAY
  4. IBUPROFEN [Suspect]
     Dosage: UNK
  5. ALPRAZOLAM [Suspect]
     Dosage: UNK
  6. DIOVAN (VALSARTAN) [Suspect]
     Dosage: UNK
  7. HYDROCODONE W/ACETAMINOPHEN [Concomitant]
     Dosage: UNK

REACTIONS (1)
  - Drug hypersensitivity [Unknown]
